FAERS Safety Report 6584968-3 (Version None)
Quarter: 2010Q1

REPORT INFORMATION
  Report Type: 
  Country: None (occurrence: None)
  Receive Date: 20100217
  Receipt Date: 20100209
  Transmission Date: 20100710
  Serious: Yes (Other)
  Sender: FDA-Public Use
  Company Number: US-SANOFI-AVENTIS-2010SA008487

PATIENT
  Age: 67 Year
  Sex: Male
  Weight: 81.65 kg

DRUGS (8)
  1. MULTAQ [Suspect]
     Route: 048
     Dates: start: 20100204, end: 20100208
  2. AMLODIPINE [Concomitant]
  3. VALSARTAN [Concomitant]
  4. COREG [Concomitant]
     Route: 048
  5. PRAVACHOL [Concomitant]
  6. LOVAZA [Concomitant]
  7. INSULIN [Concomitant]
  8. COUMADIN [Concomitant]

REACTIONS (4)
  - CARDIAC FAILURE [None]
  - DYSPNOEA [None]
  - LETHARGY [None]
  - WEIGHT INCREASED [None]
